FAERS Safety Report 19639768 (Version 1)
Quarter: 2021Q3

REPORT INFORMATION
  Report Type: Spontaneous
  Country: US (occurrence: US)
  Receive Date: 20210730
  Receipt Date: 20210730
  Transmission Date: 20211014
  Serious: Yes (Other)
  Sender: FDA-Public Use
  Company Number: US-MYLANLABS-2021M1045656

PATIENT
  Age: 72 Year
  Sex: Male

DRUGS (11)
  1. BEVACIZUMAB. [Suspect]
     Active Substance: BEVACIZUMAB
     Indication: METASTATIC RENAL CELL CARCINOMA
     Dosage: UNK
     Route: 065
  2. ATROPINE/DIPHENOXYLATE [Suspect]
     Active Substance: ATROPINE\DIPHENOXYLATE
     Indication: VOMITING
     Dosage: UNK
     Route: 065
  3. CABOZANTINIB [Concomitant]
     Active Substance: CABOZANTINIB
     Dosage: 40 MILLIGRAM, QD
     Route: 065
  4. LOPERAMIDE [Suspect]
     Active Substance: LOPERAMIDE
     Indication: DIARRHOEA
     Dosage: UNK
     Route: 065
  5. NIVOLUMAB [Concomitant]
     Active Substance: NIVOLUMAB
     Indication: METASTATIC RENAL CELL CARCINOMA
     Dosage: 240 MILLIGRAM, BIWEEKLY
     Route: 065
  6. ERLOTINIB [Suspect]
     Active Substance: ERLOTINIB
     Indication: METASTATIC RENAL CELL CARCINOMA
     Dosage: UNK
     Route: 065
  7. AXITINIB [Concomitant]
     Active Substance: AXITINIB
     Indication: METASTATIC RENAL CELL CARCINOMA
     Dosage: 5 MILLIGRAM
     Route: 065
  8. CROFELEMER [Concomitant]
     Active Substance: CROFELEMER
     Indication: DIARRHOEA
     Dosage: 125 MILLIGRAM, BID
     Route: 065
  9. OPIUM                              /00036301/ [Suspect]
     Active Substance: OPIUM
     Indication: VOMITING
     Dosage: DOSE: UP TO 6 MG DAILY AS NEEDED; TINCTURE
     Route: 065
  10. CABOZANTINIB [Concomitant]
     Active Substance: CABOZANTINIB
     Indication: METASTATIC RENAL CELL CARCINOMA
     Dosage: 60 MILLIGRAM, QD
     Route: 065
  11. CABOZANTINIB [Concomitant]
     Active Substance: CABOZANTINIB
     Dosage: 20 MILLIGRAM, QD
     Route: 065

REACTIONS (1)
  - Drug ineffective [Unknown]
